FAERS Safety Report 9444186 (Version 1)
Quarter: 2013Q3

REPORT INFORMATION
  Report Type: Spontaneous
  Country: US (occurrence: None)
  Receive Date: 20130806
  Receipt Date: 20130806
  Transmission Date: 20140515
  Serious: No
  Sender: FDA-Public Use
  Company Number: None

PATIENT
  Age: 62 Year
  Sex: Female
  Weight: 73.48 kg

DRUGS (2)
  1. OMEPRAZOLE/SODIUM BICARBONATE [Suspect]
     Indication: GASTROOESOPHAGEAL REFLUX DISEASE
     Dosage: QUANTITY:  30 CAPSULES EACH BOTTLE?FREQUENCY:  1 @ BREAKFAST, 1@ DINNER??
     Route: 048
     Dates: end: 20130712
  2. OMEPRAZOLE/SODIUM BICARBONATE [Suspect]
     Dosage: QUANTITY:  30 CAPSULES EACH BOTTLE?FREQUENCY:  1 @ BREAKFAST, 1@ DINNER??
     Route: 048
     Dates: end: 20130712

REACTIONS (4)
  - Product quality issue [None]
  - Dyspnoea [None]
  - Cough [None]
  - Exposure via inhalation [None]
